FAERS Safety Report 9683517 (Version 2)
Quarter: 2013Q4

REPORT INFORMATION
  Report Type: Spontaneous
  Country: JP (occurrence: JP)
  Receive Date: 20131112
  Receipt Date: 20131119
  Transmission Date: 20140711
  Serious: Yes (Other)
  Sender: FDA-Public Use
  Company Number: JP-TAKEDA-2013TJP002644

PATIENT
  Sex: 0

DRUGS (1)
  1. NESINA TABLETS 25MG [Suspect]
     Dosage: UNK
     Route: 048

REACTIONS (1)
  - Pancreatitis [Recovered/Resolved]
